FAERS Safety Report 7232864-0 (Version None)
Quarter: 2011Q1

REPORT INFORMATION
  Report Type: 
  Country: None (occurrence: None)
  Receive Date: 20110119
  Receipt Date: 20110105
  Transmission Date: 20110831
  Serious: No
  Sender: FDA-Public Use
  Company Number: US-B.I. PHARMACEUTICALS,INC./RIDGEFIELD-2011-BP-00740BP

PATIENT
  Sex: Male

DRUGS (10)
  1. INDOMETHACIN [Concomitant]
     Indication: ARTHRITIS
     Dosage: 50 MG
     Route: 048
  2. CIALIS [Concomitant]
     Indication: ERECTILE DYSFUNCTION
     Route: 048
  3. TEMAZEPAM [Concomitant]
     Indication: INSOMNIA
     Dosage: 30 MG
     Route: 048
  4. ASA [Concomitant]
     Indication: PROPHYLAXIS
     Dosage: 81 MG
     Route: 048
  5. SIMVASTATIN [Concomitant]
     Indication: BLOOD CHOLESTEROL INCREASED
     Route: 048
  6. PRADAXA [Suspect]
     Indication: ATRIAL FIBRILLATION
     Dosage: 300 MG
     Route: 048
     Dates: start: 20101227
  7. ALLOPURINOL [Concomitant]
     Indication: GOUT
     Dosage: 300 MG
     Route: 048
  8. LISINOPRIL [Concomitant]
     Indication: HYPERTENSION
     Dosage: 10 MG
     Route: 048
  9. PREDNISONE 1% [Concomitant]
     Indication: CATARACT
     Route: 031
     Dates: start: 20101201, end: 20110106
  10. TRIAMTERENE [Concomitant]
     Dosage: 37.5 MG
     Route: 048

REACTIONS (2)
  - COUGH [None]
  - DYSPNOEA [None]
